FAERS Safety Report 9159635 (Version 2)
Quarter: 2013Q1

REPORT INFORMATION
  Report Type: Spontaneous
  Country: AU (occurrence: None)
  Receive Date: 20130214
  Receipt Date: 20130225
  Transmission Date: 20140127
  Serious: Yes (Hospitalization)
  Sender: FDA-Public Use
  Company Number: ACO_34109_2013

PATIENT
  Age: 69 Year
  Sex: Female

DRUGS (7)
  1. FAMPRIDINE-SR (FAMPRIDINE) TABLET [Suspect]
     Indication: MULTIPLE SCLEROSIS
     Route: 048
     Dates: start: 20120703, end: 20130124
  2. BETAFERON (INTERFERON BETA-1B) [Concomitant]
  3. CALCIUM (CALCIUM) [Concomitant]
  4. VITAMIN D (COLECALCIFEROL) [Concomitant]
  5. ASPIRIN (ACETYLSALICYLIC ACID) [Concomitant]
  6. LIPITOR (ATORVASTATIN CALCIUM) [Concomitant]
  7. COVERSYL PLUS (INDAPAMIDE, PERINDOPRIL ERBUMINE) [Concomitant]

REACTIONS (6)
  - Convulsion [None]
  - Dizziness [None]
  - Unresponsive to stimuli [None]
  - Postictal state [None]
  - Fall [None]
  - Loss of consciousness [None]
